FAERS Safety Report 6699846-9 (Version None)
Quarter: 2010Q2

REPORT INFORMATION
  Report Type: 
  Country: None (occurrence: None)
  Receive Date: 20100427
  Receipt Date: 20100427
  Transmission Date: 20101027
  Serious: Yes (Other)
  Sender: FDA-Public Use
  Company Number: None

PATIENT
  Sex: Female
  Weight: 90.7194 kg

DRUGS (3)
  1. INVEGA SUSTENNA [Suspect]
     Indication: SCHIZOPHRENIA, PARANOID TYPE
     Dosage: 256 MG ONCE IM
     Route: 030
     Dates: start: 20100115
  2. INVEGA SUSTENNA [Suspect]
     Dosage: 156 MG 2 MONTH IM
     Route: 030
     Dates: start: 20100122
  3. INVEGA SUSTENNA [Suspect]
     Dosage: 156 MG 2 MONTH IM
     Route: 030
     Dates: start: 20100222

REACTIONS (2)
  - BLOOD TEST ABNORMAL [None]
  - NEUTROPENIA [None]
